FAERS Safety Report 9734881 (Version 1)
Quarter: 2013Q4

REPORT INFORMATION
  Report Type: Report from Study
  Country: JP (occurrence: JP)
  Receive Date: 20131206
  Receipt Date: 20131206
  Transmission Date: 20140711
  Serious: No
  Sender: FDA-Public Use
  Company Number: JP-JNJFOC-20131201523

PATIENT
  Age: 49 Year
  Sex: Male

DRUGS (20)
  1. STELARA [Suspect]
     Indication: PSORIASIS
     Route: 058
     Dates: start: 20110526, end: 20110526
  2. STELARA [Suspect]
     Indication: PSORIASIS
     Route: 058
     Dates: start: 20110623, end: 20110623
  3. STELARA [Suspect]
     Indication: PSORIASIS
     Route: 058
     Dates: start: 20110922, end: 20110922
  4. STELARA [Suspect]
     Indication: PSORIASIS
     Route: 058
     Dates: start: 20111216, end: 20111216
  5. STELARA [Suspect]
     Indication: PSORIASIS
     Route: 058
     Dates: start: 20120608
  6. STELARA [Suspect]
     Indication: PSORIASIS
     Route: 058
     Dates: start: 20120315, end: 20120315
  7. MUCOSTA [Concomitant]
     Route: 048
     Dates: start: 20110701
  8. ALLEGRA [Concomitant]
     Indication: PSORIASIS
     Route: 048
     Dates: start: 20090423
  9. DEPROMEL [Concomitant]
     Route: 048
     Dates: start: 20110922, end: 20120412
  10. DEPROMEL [Concomitant]
     Route: 048
     Dates: end: 20110921
  11. NULOTAN [Concomitant]
     Route: 048
     Dates: end: 20110922
  12. CALBLOCK [Concomitant]
     Route: 048
     Dates: start: 20090521
  13. ALDACTONE A [Concomitant]
     Route: 048
     Dates: end: 20110922
  14. DEPAS [Concomitant]
     Route: 048
     Dates: start: 20110512
  15. ALMETA [Concomitant]
     Indication: PSORIASIS
     Route: 061
  16. DOVONEX [Concomitant]
     Indication: PSORIASIS
     Route: 061
  17. DERMOVATE [Concomitant]
     Indication: PSORIASIS
     Route: 061
     Dates: start: 20120421
  18. LOXOPROFEN [Concomitant]
     Route: 048
     Dates: start: 20110701
  19. CYMBALTA [Concomitant]
     Route: 048
     Dates: start: 20120315
  20. DOGMATYL [Concomitant]
     Route: 048
     Dates: start: 20120412

REACTIONS (2)
  - Ear pain [Recovering/Resolving]
  - Hepatic enzyme increased [Recovered/Resolved]
